FAERS Safety Report 6703272-3 (Version None)
Quarter: 2010Q2

REPORT INFORMATION
  Report Type: 
  Country: None (occurrence: None)
  Receive Date: 20100430
  Receipt Date: 20100416
  Transmission Date: 20101027
  Serious: Yes (Other)
  Sender: FDA-Public Use
  Company Number: JP-RANBAXY-2010RR-33324

PATIENT
  Age: 58 Year
  Sex: Female

DRUGS (4)
  1. FLUCONAZOLE [Suspect]
  2. PROGRAF [Suspect]
     Indication: PROPHYLAXIS
     Dosage: 3 MG, BID
     Route: 048
  3. AMIKACIN [Suspect]
  4. ACYCLOVIR SODIUM [Concomitant]
     Indication: INFECTION PROPHYLAXIS

REACTIONS (1)
  - RENAL IMPAIRMENT [None]
